FAERS Safety Report 6781413-X (Version None)
Quarter: 2010Q2

REPORT INFORMATION
  Report Type: 
  Country: None (occurrence: None)
  Receive Date: 20100621
  Receipt Date: 20100608
  Transmission Date: 20101027
  Serious: Yes (Death)
  Sender: FDA-Public Use
  Company Number: US-ROCHE-704185

PATIENT
  Sex: Female
  Weight: 67.1 kg

DRUGS (16)
  1. CAPECITABINE [Suspect]
     Route: 048
     Dates: start: 20090613, end: 20090626
  2. FOSAMAX [Concomitant]
     Route: 048
  3. ZESTORETIC [Concomitant]
     Dosage: 20/25 MG DAILY
     Route: 048
  4. TYLENOL [Concomitant]
     Route: 048
  5. NAPROXEN [Concomitant]
     Route: 048
  6. NEXIUM [Concomitant]
     Route: 048
  7. RELAFEN [Concomitant]
     Route: 048
  8. ASPIRIN [Concomitant]
     Route: 048
  9. DILTIAZEM [Concomitant]
     Route: 048
  10. FLEXERIL [Concomitant]
     Route: 048
  11. ZOFRAN [Concomitant]
     Route: 048
  12. ASPIRIN [Concomitant]
     Route: 048
  13. POTASSIUM CHLORIDE [Concomitant]
     Route: 048
  14. LORTAB [Concomitant]
     Route: 048
  15. OMEPRAZOLE [Concomitant]
     Route: 048
  16. LASIX [Concomitant]
     Route: 048

REACTIONS (1)
  - ADENOCARCINOMA [None]
